FAERS Safety Report 6138535-6 (Version None)
Quarter: 2009Q1

REPORT INFORMATION
  Report Type: 
  Country: None (occurrence: None)
  Receive Date: 20090327
  Receipt Date: 20090313
  Transmission Date: 20090719
  Serious: Yes (Other)
  Sender: FDA-Public Use
  Company Number: 2009184339

PATIENT
  Age: 37 Year
  Sex: Female

DRUGS (1)
  1. FRAGMIN [Suspect]
     Indication: FACTOR V DEFICIENCY
     Dosage: 5000 IU, 2X/DAY
     Dates: start: 20080610, end: 20080728

REACTIONS (3)
  - ABORTION SPONTANEOUS [None]
  - DRUG EXPOSURE DURING PREGNANCY [None]
  - RUBELLA ANTIBODY POSITIVE [None]
